FAERS Safety Report 7178919-0 (Version None)
Quarter: 2010Q4

REPORT INFORMATION
  Report Type: 
  Country: None (occurrence: None)
  Receive Date: 20101221
  Receipt Date: 20101213
  Transmission Date: 20110411
  Serious: Yes (Life-Threatening, Hospitalization)
  Sender: FDA-Public Use
  Company Number: FR-KINGPHARMUSA00001-K200901521

PATIENT
  Age: 42 Year
  Sex: Male
  Weight: 59 kg

DRUGS (5)
  1. ALTACE [Suspect]
     Dosage: 10 MG, UNK
     Route: 048
     Dates: start: 20070301
  2. TAHOR [Suspect]
     Indication: DYSLIPIDAEMIA
     Dosage: 40 MG, UNK
     Route: 048
     Dates: start: 20070101
  3. KARDEGIC [Concomitant]
     Dosage: UNK MG, UNK
  4. CARDENSIEL [Concomitant]
     Dosage: UNK MG, UNK
  5. APROVEL [Concomitant]
     Dosage: UNK MG, UNK
     Route: 048
     Dates: start: 20070301

REACTIONS (18)
  - ANEURYSM [None]
  - BRADYCARDIA [None]
  - DEHYDRATION [None]
  - FISTULA [None]
  - HYPOGLYCAEMIA [None]
  - LARGE INTESTINE PERFORATION [None]
  - MULTI-ORGAN FAILURE [None]
  - PAIN [None]
  - PANCREATITIS NECROTISING [None]
  - PYELONEPHRITIS [None]
  - SEPTIC SHOCK [None]
  - SHOCK HAEMORRHAGIC [None]
  - STAPHYLOCOCCAL INFECTION [None]
  - SUBDIAPHRAGMATIC ABSCESS [None]
  - TENSION [None]
  - TOXIC SHOCK SYNDROME [None]
  - WEIGHT DECREASED [None]
  - WOUND DEHISCENCE [None]
